FAERS Safety Report 21786870 (Version 1)
Quarter: 2022Q4

REPORT INFORMATION
  Report Type: Spontaneous
  Country: PL (occurrence: PL)
  Receive Date: 20221228
  Receipt Date: 20221228
  Transmission Date: 20230113
  Serious: Yes (Hospitalization, Disabling, Other)
  Sender: FDA-Public Use
  Company Number: PL-Gedeon Richter Plc.-2022_GR_009894

PATIENT
  Age: 77 Year
  Sex: Female

DRUGS (9)
  1. ROSUVASTATIN [Interacting]
     Active Substance: ROSUVASTATIN
     Indication: Acute coronary syndrome
     Dosage: 40 MILLIGRAM, DAILY
     Route: 065
  2. TICAGRELOR [Interacting]
     Active Substance: TICAGRELOR
     Indication: Acute coronary syndrome
     Dosage: 180 MILLIGRAM, ONCE A DAY
     Route: 065
  3. ASPIRIN [Concomitant]
     Active Substance: ASPIRIN
     Indication: Acute coronary syndrome
     Dosage: 75 MILLIGRAM, ONCE A DAY
     Route: 065
  4. BISOPROLOL [Concomitant]
     Active Substance: BISOPROLOL
     Indication: Acute coronary syndrome
     Dosage: 10 MILLIGRAM, ONCE A DAY
     Route: 065
  5. INSULIN NOS [Concomitant]
     Active Substance: INSULIN NOS
     Indication: Product used for unknown indication
     Dosage: AT NIGHT
     Route: 065
  6. INSULIN ASPART [Concomitant]
     Active Substance: INSULIN ASPART
     Indication: Product used for unknown indication
     Dosage: 3 TIMES A DAY WITH MEALS
     Route: 065
  7. METFORMIN [Concomitant]
     Active Substance: METFORMIN HYDROCHLORIDE
     Indication: Type 2 diabetes mellitus
     Dosage: UNK
     Route: 065
  8. PANTOPRAZOLE [Concomitant]
     Active Substance: PANTOPRAZOLE
     Indication: Acute coronary syndrome
     Dosage: 20 MILLIGRAM, ONCE A DAY
     Route: 065
  9. RAMIPRIL [Concomitant]
     Active Substance: RAMIPRIL
     Indication: Acute coronary syndrome
     Dosage: 2.5 MILLIGRAM
     Route: 065

REACTIONS (13)
  - Gait disturbance [Recovered/Resolved]
  - Rhabdomyolysis [Recovered/Resolved]
  - Asthenia [Recovered/Resolved]
  - Alanine aminotransferase increased [Recovered/Resolved]
  - Blood urea increased [Recovered/Resolved]
  - Peripheral swelling [Recovered/Resolved]
  - Aspartate aminotransferase increased [Recovered/Resolved]
  - Blood creatinine increased [Recovered/Resolved]
  - Blood creatine phosphokinase increased [Recovered/Resolved]
  - Dysuria [Recovered/Resolved]
  - Chromaturia [Recovered/Resolved]
  - Acute kidney injury [Recovered/Resolved]
  - Drug interaction [Recovered/Resolved]
